FAERS Safety Report 7414407-1 (Version None)
Quarter: 2011Q2

REPORT INFORMATION
  Report Type: 
  Country: None (occurrence: None)
  Receive Date: 20110414
  Receipt Date: 20101011
  Transmission Date: 20111010
  Serious: Yes (Other)
  Sender: FDA-Public Use
  Company Number: US-BAYER-201022782NA

PATIENT
  Age: 17 Year
  Sex: Female
  Weight: 72.562 kg

DRUGS (7)
  1. NAPROXEN SODIUM [Concomitant]
     Dosage: 500 MG, UNK
  2. YAZ [Suspect]
     Indication: OLIGOMENORRHOEA
     Dosage: 1 DF, QD
     Dates: start: 20040101, end: 20100101
  3. NECON [Concomitant]
     Indication: ORAL CONTRACEPTION
     Dosage: UNK
     Dates: start: 20100701
  4. YASMIN [Suspect]
     Indication: PRODUCT USED FOR UNKNOWN INDICATION
     Dosage: START DATE SUMMER 2006
     Dates: start: 20060101
  5. CLARITIN [Concomitant]
     Dosage: UNK UNK, PRN
  6. YAZ [Suspect]
     Indication: MENORRHAGIA
  7. DROSPIRENONE AND ETHINYL ESTRADIOL [Concomitant]
     Indication: ORAL CONTRACEPTION
     Dosage: UNK
     Dates: start: 20100601

REACTIONS (2)
  - CHOLECYSTECTOMY [None]
  - CHOLECYSTITIS CHRONIC [None]
